FAERS Safety Report 23168083 (Version 2)
Quarter: 2023Q4

REPORT INFORMATION
  Report Type: Spontaneous
  Country: US (occurrence: US)
  Receive Date: 20231109
  Receipt Date: 20231114
  Transmission Date: 20240110
  Serious: Yes (Other)
  Sender: FDA-Public Use
  Company Number: US-BRISTOL-MYERS SQUIBB COMPANY-2023-158439

PATIENT
  Age: 82 Year
  Sex: Female

DRUGS (2)
  1. REVLIMID [Suspect]
     Active Substance: LENALIDOMIDE
     Indication: Plasma cell myeloma
     Dosage: TAKE 1 CAPSULE BY MOUTH WHOLE WITH WATER, WITH OR WITHOUT FOOD, AT THE SAME TIME DAILY ON DAYS 1-14
     Route: 048
     Dates: start: 20231017
  2. REVLIMID [Suspect]
     Active Substance: LENALIDOMIDE
     Dosage: TAKEN MEDICATION VERY OTHER DAY
     Route: 048
     Dates: start: 202311

REACTIONS (7)
  - Malaise [Recovering/Resolving]
  - Anger [Unknown]
  - Pain [Unknown]
  - Platelet count decreased [Recovered/Resolved]
  - Aggression [Unknown]
  - Discomfort [Unknown]
  - Off label use [Unknown]
